FAERS Safety Report 11964927 (Version 1)
Quarter: 2016Q1

REPORT INFORMATION
  Report Type: Spontaneous
  Country: US (occurrence: None)
  Receive Date: 20160125
  Receipt Date: 20160125
  Transmission Date: 20160526
  Serious: No
  Sender: FDA-Public Use
  Company Number: None

PATIENT
  Age: 51 Year
  Sex: Female
  Weight: 105.24 kg

DRUGS (2)
  1. DOXYCYCLINE. [Suspect]
     Active Substance: DOXYCYCLINE
     Indication: PNEUMONIA
     Route: 048
     Dates: start: 20160122, end: 20160122
  2. ROBITUSSIN WITH DEXTROMETHORPHAN [Concomitant]

REACTIONS (5)
  - Sneezing [None]
  - Rhinorrhoea [None]
  - Cough [None]
  - Hypersensitivity [None]
  - Asthma [None]

NARRATIVE: CASE EVENT DATE: 20160122
